FAERS Safety Report 16853327 (Version 1)
Quarter: 2019Q3

REPORT INFORMATION
  Report Type: Spontaneous
  Country: US (occurrence: US)
  Receive Date: 20190802
  Receipt Date: 20190802
  Transmission Date: 20191005
  Serious: No
  Sender: FDA-Public Use
  Company Number: None

PATIENT
  Age: 45 Year
  Sex: Male

DRUGS (9)
  1. ACETAMINOPHEN. [Concomitant]
     Active Substance: ACETAMINOPHEN
  2. AMIODARONE [Concomitant]
     Active Substance: AMIODARONE
  3. COLCHICINE. [Concomitant]
     Active Substance: COLCHICINE
  4. CYCLOBENZAPRINE. [Concomitant]
     Active Substance: CYCLOBENZAPRINE
  5. HYDRALAZINE [Concomitant]
     Active Substance: HYDRALAZINE HYDROCHLORIDE
  6. ALBUTEROL. [Concomitant]
     Active Substance: ALBUTEROL
  7. WARFARIN [Suspect]
     Active Substance: WARFARIN
     Indication: ATRIAL FIBRILLATION
     Route: 048
     Dates: start: 20171107
  8. HYDROXYZINE [Concomitant]
     Active Substance: HYDROXYZINE HYDROCHLORIDE
  9. ISOSORBIDE MONONITRATE. [Concomitant]
     Active Substance: ISOSORBIDE MONONITRATE

REACTIONS (6)
  - Abdominal pain [None]
  - Diarrhoea [None]
  - International normalised ratio increased [None]
  - Nausea [None]
  - Vomiting [None]
  - Haematochezia [None]

NARRATIVE: CASE EVENT DATE: 20190226
